FAERS Safety Report 7426057-1 (Version None)
Quarter: 2011Q2

REPORT INFORMATION
  Report Type: 
  Country: None (occurrence: None)
  Receive Date: 20110412
  Receipt Date: 20110329
  Transmission Date: 20111010
  Serious: Yes (Other)
  Sender: FDA-Public Use
  Company Number: 2011SP014749

PATIENT
  Sex: Male

DRUGS (3)
  1. RIBAVIRIN [Suspect]
  2. PERCOCCET [Concomitant]
  3. PEG-INTRON [Suspect]
     Indication: HEPATITIS C

REACTIONS (12)
  - HEADACHE [None]
  - CONDITION AGGRAVATED [None]
  - ANGER [None]
  - FEELING COLD [None]
  - BONE PAIN [None]
  - ANXIETY [None]
  - IRRITABILITY [None]
  - PAIN [None]
  - AGITATION [None]
  - INSOMNIA [None]
  - DYSGEUSIA [None]
  - SCIATICA [None]
